FAERS Safety Report 11117298 (Version 2)
Quarter: 2015Q2

REPORT INFORMATION
  Report Type: Spontaneous
  Country: US (occurrence: US)
  Receive Date: 20150515
  Receipt Date: 20150605
  Transmission Date: 20150821
  Serious: Yes (Hospitalization, Other)
  Sender: FDA-Public Use
  Company Number: US-B.I. PHARMACEUTICALS,INC./RIDGEFIELD-2015-BI-24518BP

PATIENT
  Sex: Female
  Weight: 63.5 kg

DRUGS (1)
  1. JARDIANCE [Suspect]
     Active Substance: EMPAGLIFLOZIN
     Indication: DIABETES MELLITUS
     Route: 048
     Dates: start: 20150304

REACTIONS (5)
  - Sepsis [Unknown]
  - Haemolytic anaemia [Unknown]
  - Haematuria [Unknown]
  - Urinary tract infection [Unknown]
  - Low density lipoprotein increased [Unknown]
